FAERS Safety Report 4842793-5 (Version None)
Quarter: 2005Q4

REPORT INFORMATION
  Report Type: 
  Country: None (occurrence: None)
  Receive Date: 20051130
  Receipt Date: 20051117
  Transmission Date: 20060501
  Serious: Yes (Disabling, Other)
  Sender: FDA-Public Use
  Company Number: 2005032566

PATIENT
  Age: 55 Year
  Sex: Female
  Weight: 86 kg

DRUGS (44)
  1. ATORVASTATIN CALCIUM [Suspect]
     Indication: HYPERCHOLESTEROLAEMIA
     Dates: start: 19970101
  2. STALTOR (CERIVASTATIN) [Suspect]
     Indication: HYPERCHOLESTEROLAEMIA
     Dates: start: 19970101
  3. NAPROXEN [Concomitant]
  4. OMEPRAZOLE [Concomitant]
  5. CHOLESTYRAMINE [Concomitant]
  6. PRAVASTATIN [Suspect]
     Indication: HYPERCHOLESTEROLAEMIA
     Dates: start: 19970101
  7. GEMFIBROZIL [Suspect]
     Indication: HYPERCHOLESTEROLAEMIA
     Dates: start: 20011103
  8. GALENIC /HYDROCHLOROTHIAZIDE /IRBESARTAN (HYDROCHLOROTHIAZIDE, IRBESAR [Concomitant]
  9. CELECOXIB (CELECOXIB) [Concomitant]
  10. ROXITHROMYCIN (ROXITHROMYCIN) [Concomitant]
  11. FENOFRIBATE (FENOFIBRATE) [Concomitant]
  12. AMLODIPINE [Concomitant]
  13. CETIRIZINE/PSEUDOEPHEDRINE (CETIRIZINE, PSEUDOEPHEDRINE) [Concomitant]
  14. DICLOFENAC SODIUM/MISOPROSTOL (DICLOFENAC SODIUM, MISOPROSTOL) [Concomitant]
  15. MEFENAMIC ACID (MEFANIC ACID) [Concomitant]
  16. TETRAZEPAM (TETRAZEPAM) [Concomitant]
  17. IBACITABINE (IBACITABINE) [Concomitant]
  18. IRBESTARTAN (IRBESARTAN) [Concomitant]
  19. DEXCHLORPHENIRAMINE MALEATE [Concomitant]
  20. BETAMETHASONE [Concomitant]
  21. METRONIDAZOLE [Concomitant]
  22. IPRATROPIUM BROMIDE [Concomitant]
  23. CEFTRIAXONE [Concomitant]
  24. METHYLPREDNISOLONE HEMISUCCINATE (METHYLPREDNISOLONE HEMISUCCINATE) [Concomitant]
  25. GADOTERIDOL (GADOTERIDOL) [Concomitant]
  26. TRAMADOL HCL [Concomitant]
  27. AMANTADINE HCL [Concomitant]
  28. AMBROXOL (AMBROXOL) [Concomitant]
  29. FLUNISOLIDE HEMIHYDRATE (FLUNISOLIDE HEMIHYDRATE) [Concomitant]
  30. TRIAMINCOLONE ACETONIDE (TRIAMCINOLONE ACETONIDE) [Concomitant]
  31. ESTRADIOL HEMIHYDRATE (ESTRADIOL) [Concomitant]
  32. ACETYLSALICYLATE LYSINE (ACETYLSALICYLATE LYSINE) [Concomitant]
  33. ACETYLCYSTEINE (ACETYSTEINE) [Concomitant]
  34. BACLOFEN [Concomitant]
  35. AUBEPINE (CRATAEGUS) [Concomitant]
  36. AMITRIPTYLINE HCL [Concomitant]
  37. FUSAFUNGINE (FUSAFUNGINE) [Concomitant]
  38. ALL OTHER THERAPEUTIC PRODUCTS (ALL OTHER THERAPEUTIC PRODUCTS) [Concomitant]
  39. TROXERUTIN (TROXERUTIN) [Concomitant]
  40. LEVOCETIRIZINE DIHYDROCHLORIDE (LEVOCETIRIZINE DIHYDROCHLORIDE) [Concomitant]
  41. NADROPARIN CALCIUM (NADROPARIN CALCIUM) [Concomitant]
  42. NIMESULIDE (NIMESULIDE) [Concomitant]
  43. RABEPRAZOLE SODIUM [Concomitant]
  44. METFORMIN HCL [Concomitant]

REACTIONS (53)
  - ABDOMINAL OPERATION [None]
  - ABDOMINAL PAIN [None]
  - ACTIVITIES OF DAILY LIVING IMPAIRED [None]
  - APRAXIA [None]
  - ARTHRALGIA [None]
  - BACK PAIN [None]
  - BLOOD CHOLESTEROL INCREASED [None]
  - BONE PAIN [None]
  - BOWEL MOVEMENT IRREGULARITY [None]
  - BRADYKINESIA [None]
  - CHOLELITHIASIS [None]
  - CONSTIPATION [None]
  - DIARRHOEA [None]
  - DIFFICULTY IN WALKING [None]
  - DIPLEGIA [None]
  - DYSKINESIA [None]
  - DYSTONIA [None]
  - FATIGUE [None]
  - FIBROMYALGIA [None]
  - FORMICATION [None]
  - HYPERCHOLESTEROLAEMIA [None]
  - HYPERTENSION [None]
  - HYPOAESTHESIA [None]
  - HYPOGEUSIA [None]
  - HYPOKINESIA [None]
  - HYPOSMIA [None]
  - IMPAIRED DRIVING ABILITY [None]
  - INSOMNIA [None]
  - JOINT STIFFNESS [None]
  - MULTIPLE SCLEROSIS [None]
  - MUSCLE SPASMS [None]
  - MUSCULOSKELETAL DISCOMFORT [None]
  - MUSCULOSKELETAL PAIN [None]
  - MUSCULOSKELETAL STIFFNESS [None]
  - MYELITIS [None]
  - NASAL SEPTUM DEVIATION [None]
  - NECK PAIN [None]
  - NERVOUS SYSTEM DISORDER [None]
  - OSTEOARTHRITIS [None]
  - PAIN [None]
  - PARAESTHESIA [None]
  - PERIARTHRITIS [None]
  - POLLAKIURIA [None]
  - POLYP [None]
  - POSTURE ABNORMAL [None]
  - RHABDOMYOLYSIS [None]
  - SCIATICA [None]
  - SINUS POLYP [None]
  - SPINAL OSTEOARTHRITIS [None]
  - THYROID FUNCTION TEST ABNORMAL [None]
  - TREATMENT NONCOMPLIANCE [None]
  - TREMOR [None]
  - URINARY INCONTINENCE [None]
